FAERS Safety Report 25167386 (Version 1)
Quarter: 2025Q2

REPORT INFORMATION
  Report Type: Spontaneous
  Country: US (occurrence: None)
  Receive Date: 20250404
  Receipt Date: 20250404
  Transmission Date: 20250716
  Serious: No
  Sender: FDA-CTU
  Company Number: None

PATIENT
  Age: 26 Year
  Sex: Female

DRUGS (1)
  1. ZURZUVAE [Suspect]
     Active Substance: ZURANOLONE
     Dosage: FREQUENCY : AT BEDTIME;?
     Route: 048

REACTIONS (3)
  - Somnolence [None]
  - Somnolence [None]
  - Wrong technique in product usage process [None]

NARRATIVE: CASE EVENT DATE: 20250322
